FAERS Safety Report 8827275 (Version 1)
Quarter: 2012Q4

REPORT INFORMATION
  Report Type: 
  Country: FI (occurrence: FI)
  Receive Date: 20121008
  Receipt Date: 20121008
  Transmission Date: 20130627
  Serious: Yes (Hospitalization)
  Sender: FDA-Public Use
  Company Number: FI-MERCK-1210FIN002304

PATIENT
  Age: 40 Year
  Sex: Male

DRUGS (3)
  1. REBETOL [Suspect]
     Indication: HEPATITIS
  2. PEGASYS [Suspect]
     Indication: HEPATITIS
     Route: 058
  3. TELAPREVIR [Suspect]
     Indication: HEPATITIS
     Route: 048

REACTIONS (3)
  - Sepsis [Recovered/Resolved]
  - Pyelonephritis [Recovered/Resolved]
  - Neutropenia [Unknown]
